FAERS Safety Report 11705649 (Version 4)
Quarter: 2016Q3

REPORT INFORMATION
  Report Type: Report from Study
  Country: FR (occurrence: FR)
  Receive Date: 20151106
  Receipt Date: 20160927
  Transmission Date: 20161109
  Serious: Yes (Death)
  Sender: FDA-Public Use
  Company Number: FR-PFIZER INC-2015361212

PATIENT
  Age: 73 Year
  Sex: Male

DRUGS (10)
  1. DEXERYL /01579901/ [Concomitant]
     Active Substance: GLYCERIN\MINERAL OIL\PARAFFIN
     Indication: PROPHYLAXIS
     Dosage: UNK
     Dates: start: 201504
  2. SERETIDE [Concomitant]
     Active Substance: FLUTICASONE PROPIONATE\SALMETEROL XINAFOATE
     Indication: METASTASES TO LUNG
     Dosage: UNK
     Dates: start: 201502
  3. O2 /00150301/ [Concomitant]
     Active Substance: OXYGEN
     Indication: METASTASES TO LUNG
     Dosage: UNK
     Dates: start: 201502
  4. VENTOLINE /00139501/ [Concomitant]
     Active Substance: ALBUTEROL
     Indication: METASTASES TO LUNG
     Dosage: UNK
     Dates: start: 201502
  5. CORDARONE [Concomitant]
     Active Substance: AMIODARONE HYDROCHLORIDE
     Indication: PROPHYLAXIS
     Dosage: UNK
     Dates: start: 201505
  6. LASILIX /00032601/ [Concomitant]
     Active Substance: FUROSEMIDE
     Indication: PROPHYLAXIS
     Dosage: UNK
     Dates: start: 201505
  7. SPIRIVA [Concomitant]
     Active Substance: TIOTROPIUM BROMIDE MONOHYDRATE
     Indication: METASTASES TO LUNG
     Dosage: UNK
     Dates: start: 201502
  8. SUNITINIB MALATE. [Suspect]
     Active Substance: SUNITINIB MALATE
     Indication: METASTATIC RENAL CELL CARCINOMA
     Dosage: 50 MG, CYCLIC, 4 WEEKS ON, 2 WEEKS OFF
     Dates: start: 20150411, end: 201506
  9. SOLUPRED /00016201/ [Concomitant]
     Active Substance: PREDNISOLONE
     Indication: METASTASES TO LUNG
     Dosage: 20 MG, UNK
     Dates: start: 201502
  10. ESOMEPRAZOLE [Concomitant]
     Active Substance: ESOMEPRAZOLE
     Dosage: UNK

REACTIONS (1)
  - Death [Fatal]

NARRATIVE: CASE EVENT DATE: 20150618
